FAERS Safety Report 16202286 (Version 2)
Quarter: 2019Q2

REPORT INFORMATION
  Report Type: Spontaneous
  Country: VE (occurrence: VE)
  Receive Date: 20190416
  Receipt Date: 20190523
  Transmission Date: 20190711
  Serious: Yes (Other)
  Sender: FDA-Public Use
  Company Number: PHHY2019VE080169

PATIENT
  Age: 59 Year
  Sex: Female

DRUGS (1)
  1. DICLOFENAC [Suspect]
     Active Substance: DICLOFENAC
     Indication: PRODUCT USED FOR UNKNOWN INDICATION
     Dosage: UNK
     Route: 065

REACTIONS (7)
  - Sinusitis [Unknown]
  - Urticaria chronic [Unknown]
  - Rhinitis [Unknown]
  - Concomitant disease aggravated [Unknown]
  - Hypersensitivity [Unknown]
  - Asthma [Unknown]
  - Aspirin-exacerbated respiratory disease [Unknown]
